FAERS Safety Report 5701785-4 (Version None)
Quarter: 2008Q2

REPORT INFORMATION
  Report Type: 
  Country: None (occurrence: None)
  Receive Date: 20080408
  Receipt Date: 20080325
  Transmission Date: 20081010
  Serious: Yes (Death)
  Sender: FDA-Public Use
  Company Number: GP-08-03-0016

PATIENT
  Age: 54 Year
  Sex: Male

DRUGS (2)
  1. OXCARBAZEPINE [Suspect]
     Indication: CONVULSION
     Dosage: ORAL
     Route: 048
     Dates: start: 20070821, end: 20080126
  2. LAMICTAL [Concomitant]

REACTIONS (1)
  - SUDDEN DEATH [None]
